FAERS Safety Report 7105062-9 (Version None)
Quarter: 2010Q4

REPORT INFORMATION
  Report Type: 
  Country: None (occurrence: None)
  Receive Date: 20101109
  Receipt Date: 20101026
  Transmission Date: 20110411
  Serious: Yes (Hospitalization)
  Sender: FDA-Public Use
  Company Number: 8045326

PATIENT
  Sex: Female

DRUGS (13)
  1. CIMZIA [Suspect]
     Indication: CROHN'S DISEASE
     Dosage: (400 MG 1X/2 WEEKS, - NR OF DOSES: 3 SUBCUTANEOUS), (SBCUTANEOUS) (SUBCUTANEOUS), (SUBCUTANEOUS)
     Route: 058
     Dates: start: 20061123, end: 20061201
  2. CIMZIA [Suspect]
     Indication: CROHN'S DISEASE
     Dosage: (400 MG 1X/2 WEEKS, - NR OF DOSES: 3 SUBCUTANEOUS), (SBCUTANEOUS) (SUBCUTANEOUS), (SUBCUTANEOUS)
     Route: 058
     Dates: start: 20061201, end: 20070531
  3. CIMZIA [Suspect]
     Indication: CROHN'S DISEASE
     Dosage: (400 MG 1X/2 WEEKS, - NR OF DOSES: 3 SUBCUTANEOUS), (SBCUTANEOUS) (SUBCUTANEOUS), (SUBCUTANEOUS)
     Route: 058
     Dates: start: 20070627
  4. CIMZIA [Suspect]
     Indication: CROHN'S DISEASE
     Dosage: (400 MG 1X/2 WEEKS, - NR OF DOSES: 3 SUBCUTANEOUS), (SBCUTANEOUS) (SUBCUTANEOUS), (SUBCUTANEOUS)
     Route: 058
     Dates: start: 20080515
  5. AZATHIOPRINE [Concomitant]
  6. LOPEDIUM [Concomitant]
  7. LOSARTAN POTASSIUM AND HYDROCHLOROTHIAZIDE [Concomitant]
  8. BISOPROLOL [Concomitant]
  9. ESTRAGEST /00686201/ [Concomitant]
  10. SINUPRET /00578801/ [Concomitant]
  11. VALORON /00205402/ [Concomitant]
  12. CIPROFLOXACIN HCL [Concomitant]
  13. PENTAZOL [Concomitant]

REACTIONS (7)
  - ANAL ABSCESS [None]
  - ANAL FISTULA [None]
  - ANAL STENOSIS [None]
  - BREAST ABSCESS [None]
  - GASTROINTESTINAL STOMA COMPLICATION [None]
  - NASOPHARYNGITIS [None]
  - PROCEDURAL PAIN [None]
